FAERS Safety Report 15814807 (Version 1)
Quarter: 2019Q1

REPORT INFORMATION
  Report Type: Spontaneous
  Country: US (occurrence: US)
  Receive Date: 20190111
  Receipt Date: 20190111
  Transmission Date: 20190417
  Serious: Yes (Death)
  Sender: FDA-Public Use
  Company Number: US-INSYS THERAPEUTICS, INC-INS201901-000011

PATIENT
  Age: 32 Year
  Sex: Female

DRUGS (6)
  1. FENTANYL. [Suspect]
     Active Substance: FENTANYL
     Indication: PRODUCT USED FOR UNKNOWN INDICATION
  2. NORFENTANYL [Suspect]
     Active Substance: NORFENTANYL
  3. ALPRAZOLAM. [Suspect]
     Active Substance: ALPRAZOLAM
  4. HEROIN [Suspect]
     Active Substance: DIAMORPHINE
  5. MORPHINE [Suspect]
     Active Substance: MORPHINE
  6. CYCLOPROPYLFENTANYL [Suspect]
     Active Substance: CYCLOPROPYLFENTANYL

REACTIONS (1)
  - Death [Fatal]

NARRATIVE: CASE EVENT DATE: 2017
